FAERS Safety Report 7350564-3 (Version None)
Quarter: 2011Q1

REPORT INFORMATION
  Report Type: 
  Country: None (occurrence: None)
  Receive Date: 20110222
  Receipt Date: 20101207
  Transmission Date: 20110831
  Serious: No
  Sender: FDA-Public Use
  Company Number: 023410

PATIENT
  Sex: Female

DRUGS (4)
  1. LACOSAMIDE [Suspect]
     Indication: CONVULSION
     Dosage: (200)
  2. TOPIRAMATE [Concomitant]
  3. VALPROATE SODIUM [Concomitant]
  4. LAMOTRGINE [Concomitant]

REACTIONS (1)
  - WEIGHT INCREASED [None]
